FAERS Safety Report 8058976-X (Version None)
Quarter: 2012Q1

REPORT INFORMATION
  Report Type: 
  Country: None (occurrence: None)
  Receive Date: 20120113
  Receipt Date: 20120104
  Transmission Date: 20120608
  Serious: Yes (Death, Other)
  Sender: FDA-Public Use
  Company Number: US-2012-10008

PATIENT
  Age: 40 Year
  Sex: Female

DRUGS (1)
  1. BUSULFAN [Suspect]
     Indication: CHRONIC MYELOID LEUKAEMIA
     Dosage: 145 MG/M2, INTRAVENOUS; INTRAVENOUS
     Route: 042

REACTIONS (20)
  - NAUSEA [None]
  - COUGH [None]
  - GENERAL PHYSICAL HEALTH DETERIORATION [None]
  - BLOOD PH INCREASED [None]
  - NEOPLASM PROGRESSION [None]
  - HYPERTENSION [None]
  - DYSPNOEA [None]
  - DYSPNOEA EXERTIONAL [None]
  - SUDDEN DEATH [None]
  - MUCOSAL INFLAMMATION [None]
  - ASTHENIA [None]
  - ALVEOLAR PROTEINOSIS [None]
  - FALL [None]
  - MYOPATHY [None]
  - PULMONARY EMBOLISM [None]
  - TACHYPNOEA [None]
  - CHRONIC MYELOID LEUKAEMIA [None]
  - GRAFT VERSUS HOST DISEASE IN INTESTINE [None]
  - OSTEOPENIA [None]
  - GRAFT VERSUS HOST DISEASE [None]
